FAERS Safety Report 4336327-1 (Version None)
Quarter: 2004Q2

REPORT INFORMATION
  Report Type: 
  Country: None (occurrence: None)
  Receive Date: 20040407
  Receipt Date: 20040325
  Transmission Date: 20050107
  Serious: Yes (Other)
  Sender: FDA-Public Use
  Company Number: US-JNJFOC-20040305989

PATIENT
  Age: 47 Year
  Sex: Female

DRUGS (20)
  1. DURAGESIC [Suspect]
     Indication: PAIN
     Dosage: 150 UG/HR, 1 IN 72 HOUR, TRANSDERMAL
     Route: 062
     Dates: start: 20040201, end: 20040324
  2. DURAGESIC [Suspect]
     Indication: PAIN
     Dosage: SEE IMAGE
     Route: 062
     Dates: start: 20040201, end: 20040324
  3. DURAGESIC [Suspect]
     Indication: PAIN
     Dosage: SEE IMAGE
     Route: 062
     Dates: start: 20040325
  4. CLONIDINE [Concomitant]
  5. SYNTHROID (LEVOTHYROXINE SODIUM) TABLETS [Concomitant]
  6. CELLCEPT [Concomitant]
  7. VANCOMYCIN (VANCOMYCIN) SUSPENSION [Concomitant]
  8. ASA (ACETYLSALICYLIC ACID) TABLETS [Concomitant]
  9. METOPROLOL (METOPROLOL) TABLETS [Concomitant]
  10. RENAGEL (SEVELAMER HYDROCHLORIDE) CAPSULES [Concomitant]
  11. LASIX [Concomitant]
  12. PREDNISONE [Concomitant]
  13. PEHNOBARBITAL (PHENOBARBITAL) TABLETS [Concomitant]
  14. ALLOPURINOL (ALLOPURINOL) TABLETS [Concomitant]
  15. FOLCI ACID (FOLIC ACID) TABLETS [Concomitant]
  16. PRILOSEC [Concomitant]
  17. VALCYTE (VALPROIC ACID) TABLETS [Concomitant]
  18. RESTORIL (TEMAZEPAM) TABELTS [Concomitant]
  19. NORCO (VICODIN) TABLETS [Concomitant]
  20. COZAAR [Concomitant]

REACTIONS (4)
  - ANXIETY [None]
  - BLOOD PRESSURE INCREASED [None]
  - DYSPNOEA [None]
  - PRURITUS [None]
